FAERS Safety Report 17515990 (Version 1)
Quarter: 2020Q1

REPORT INFORMATION
  Report Type: Spontaneous
  Country: JP (occurrence: JP)
  Receive Date: 20200309
  Receipt Date: 20200309
  Transmission Date: 20200409
  Serious: Yes (Other)
  Sender: FDA-Public Use
  Company Number: JP-EISAI MEDICAL RESEARCH-EC-2020-071093

PATIENT
  Age: 0 Day
  Sex: Male

DRUGS (6)
  1. MERCAZOLE [Concomitant]
     Active Substance: CARBIMAZOLE
     Indication: FOETAL EXPOSURE DURING PREGNANCY
     Dosage: FREQUENCY UNKNOWN
     Route: 064
     Dates: start: 2019, end: 20190411
  2. FOLIAMIN [Concomitant]
     Active Substance: FOLIC ACID
     Indication: FOETAL EXPOSURE DURING PREGNANCY
     Dosage: FREQUENCY UNKNOWN
     Route: 064
     Dates: start: 20190409
  3. FYCOMPA [Suspect]
     Active Substance: PERAMPANEL
     Indication: FOETAL EXPOSURE DURING PREGNANCY
     Route: 064
     Dates: start: 2019, end: 20191129
  4. THYRADIN S [Concomitant]
     Active Substance: LEVOTHYROXINE SODIUM
     Indication: FOETAL EXPOSURE DURING PREGNANCY
     Dosage: FREQUENCY UNKNOWN
     Route: 064
     Dates: start: 2019
  5. LAMICTAL [Suspect]
     Active Substance: LAMOTRIGINE
     Indication: FOETAL EXPOSURE DURING PREGNANCY
     Dosage: FREQUENCY UNKNOWN
     Route: 064
     Dates: start: 2019
  6. THIURAGYL [Concomitant]
     Active Substance: PROPYLTHIOURACIL
     Indication: FOETAL EXPOSURE DURING PREGNANCY
     Dosage: FREQUENCY UNKNOWN
     Route: 064
     Dates: start: 2019

REACTIONS (2)
  - Foetal exposure during pregnancy [Unknown]
  - Respiratory disorder neonatal [Unknown]

NARRATIVE: CASE EVENT DATE: 20191129
